FAERS Safety Report 23890472 (Version 1)
Quarter: 2024Q2

REPORT INFORMATION
  Report Type: Spontaneous
  Country: GB (occurrence: GB)
  Receive Date: 20240523
  Receipt Date: 20240523
  Transmission Date: 20240716
  Serious: Yes (Hospitalization, Other)
  Sender: FDA-Public Use
  Company Number: None

PATIENT
  Age: 74 Year
  Sex: Female
  Weight: 42 kg

DRUGS (1)
  1. AMOXICILLIN\CLAVULANATE POTASSIUM [Suspect]
     Active Substance: AMOXICILLIN\CLAVULANATE POTASSIUM
     Indication: Product used for unknown indication
     Dosage: UNK
     Route: 065

REACTIONS (6)
  - Liver function test abnormal [Recovering/Resolving]
  - Administration site swelling [Unknown]
  - Drug-induced liver injury [Unknown]
  - Jaundice [Recovered/Resolved]
  - Hepatitis cholestatic [Unknown]
  - Documented hypersensitivity to administered product [Recovered/Resolved]

NARRATIVE: CASE EVENT DATE: 20240210
